FAERS Safety Report 9213039 (Version 1)
Quarter: 2013Q1

REPORT INFORMATION
  Report Type: Spontaneous
  Country: US (occurrence: None)
  Receive Date: 20120824
  Receipt Date: 20120824
  Transmission Date: 20140127
  Serious: Yes (Hospitalization)
  Sender: FDA-Public Use
  Company Number: A-NJ2011-57491

PATIENT
  Age: 67 Year
  Sex: Male

DRUGS (13)
  1. VELETRI [Concomitant]
     Indication: PULMONARY ARTERIAL HYPERTENSION
     Dosage: 30 NG/KG, PER MIN, IV DRIP
     Route: 041
     Dates: start: 20110324
  2. COUMADIN (WARFARIN SODIUM) [Concomitant]
  3. SPIRONOLACTONE (SPIRONOLACTONE) [Concomitant]
  4. ALLEGRA [Concomitant]
  5. FUROSEMIDE (FUROSEMIDE) [Concomitant]
  6. IMODIUM ((LOPERAMIDE HYDROCHLORIDE) [Concomitant]
  7. PROTONIX (PANTOPRAZOLE SODIUM SESQUIHYDRATE) [Concomitant]
  8. CALCIUM + VITAMIN D (CALCIUM, CALCIFEROL) [Concomitant]
  9. FERROUS SULFATE (FERROUS SULFATE) [Concomitant]
  10. PREDNISONE (PREDNISONE) [Concomitant]
  11. PROCHLORPERAZINE (PROCHLORPERAZINE) [Concomitant]
  12. SPIRIVA (TIOTROPIUM BROMIDE) [Concomitant]
  13. TYLENOL W/CODEINE NO. 3 (CODEINE PHOSPHATE, PARACETAMOL) [Concomitant]

REACTIONS (10)
  - Pulmonary hypertension [None]
  - Fluid retention [None]
  - Hypertension [None]
  - Headache [None]
  - Right ventricular failure [None]
  - Dyspnoea [None]
  - Ascites [None]
  - Paracentesis [None]
  - Hepatic congestion [None]
  - Oedema [None]
